FAERS Safety Report 6706137-6 (Version None)
Quarter: 2010Q2

REPORT INFORMATION
  Report Type: 
  Country: None (occurrence: None)
  Receive Date: 20100430
  Receipt Date: 20100430
  Transmission Date: 20101027
  Serious: Yes (Hospitalization)
  Sender: FDA-Public Use
  Company Number: None

PATIENT
  Sex: Female
  Weight: 108 kg

DRUGS (1)
  1. CYTARABINE [Suspect]
     Dosage: 38160 MG
     Dates: start: 20091214, end: 20091219

REACTIONS (8)
  - BLOOD PRESSURE DIASTOLIC INCREASED [None]
  - CATHETER SITE RELATED REACTION [None]
  - FEBRILE NEUTROPENIA [None]
  - FEELING COLD [None]
  - HEART RATE INCREASED [None]
  - INDURATION [None]
  - THROMBOCYTOPENIA [None]
  - WHITE BLOOD CELL COUNT DECREASED [None]
